FAERS Safety Report 19769915 (Version 1)
Quarter: 2021Q3

REPORT INFORMATION
  Report Type: Spontaneous
  Country: US (occurrence: US)
  Receive Date: 20210830
  Receipt Date: 20210830
  Transmission Date: 20211014
  Serious: No
  Sender: FDA-Public Use
  Company Number: None

PATIENT
  Age: 70 Year
  Sex: Male
  Weight: 67 kg

DRUGS (1)
  1. HYDROMORPHONE (HYDROMORPHONE 2MG/ML INJ,SOLN,PCA,30ML) [Suspect]
     Active Substance: HYDROMORPHONE
     Indication: PRODUCT USED FOR UNKNOWN INDICATION
     Dates: start: 20210825, end: 20210825

REACTIONS (2)
  - Wrong product administered [None]
  - Respiratory depression [None]

NARRATIVE: CASE EVENT DATE: 20210825
